FAERS Safety Report 7964086-X (Version None)
Quarter: 2011Q4

REPORT INFORMATION
  Report Type: 
  Country: None (occurrence: None)
  Receive Date: 20111208
  Receipt Date: 20111201
  Transmission Date: 20120403
  Serious: Yes (Hospitalization)
  Sender: FDA-Public Use
  Company Number: SE-ABBOTT-11P-150-0879989-00

PATIENT
  Sex: Female

DRUGS (2)
  1. HUMIRA [Suspect]
     Indication: ANKYLOSING SPONDYLITIS
     Route: 058
     Dates: start: 20110130, end: 20110213
  2. HUMIRA [Suspect]
     Dates: start: 20110901

REACTIONS (3)
  - POSTOPERATIVE WOUND INFECTION [None]
  - CAESAREAN SECTION [None]
  - PRE-ECLAMPSIA [None]
